FAERS Safety Report 21383639 (Version 1)
Quarter: 2022Q3

REPORT INFORMATION
  Report Type: Report from Study
  Country: US (occurrence: US)
  Receive Date: 20220928
  Receipt Date: 20220928
  Transmission Date: 20221026
  Serious: Yes (Other)
  Sender: FDA-Public Use
  Company Number: US-ABBVIE-4130381

PATIENT
  Sex: Female

DRUGS (4)
  1. HUMIRA [Suspect]
     Active Substance: ADALIMUMAB
     Indication: Rheumatoid arthritis
     Route: 058
  2. Covid vaccine Jand J [Concomitant]
     Indication: COVID-19 immunisation
     Dosage: 1 IN 1 ONCE, FIRST DOSE
     Route: 030
  3. Covid vaccine Jand J [Concomitant]
     Indication: COVID-19 immunisation
     Dosage: 1 IN 1 ONCE, SECOND DOSE
     Route: 030
  4. MODERNA COVID-19 VACCINE [Concomitant]
     Active Substance: ELASOMERAN
     Indication: COVID-19 immunisation
     Dosage: BOOSTER DOSE?1 IN 1 ONCE
     Route: 030

REACTIONS (1)
  - Cataract [Not Recovered/Not Resolved]
